FAERS Safety Report 9346107 (Version 1)
Quarter: 2013Q2

REPORT INFORMATION
  Report Type: Spontaneous
  Country: FR (occurrence: FR)
  Receive Date: 20130613
  Receipt Date: 20130613
  Transmission Date: 20140414
  Serious: Yes (Hospitalization, Other)
  Sender: FDA-Public Use
  Company Number: FR-ELI_LILLY_AND_COMPANY-FR201306000668

PATIENT
  Age: 81 Year
  Sex: Female

DRUGS (6)
  1. ZYPREXA [Suspect]
     Indication: ABNORMAL BEHAVIOUR
     Dosage: 5 MG, QD
     Route: 048
     Dates: start: 20120427, end: 20120429
  2. SERESTA [Concomitant]
     Indication: ANXIETY
     Dosage: 1 DF, UNKNOWN
     Route: 065
     Dates: end: 20120427
  3. FUROSEMIDE [Concomitant]
     Dosage: 20 MG, QD
     Route: 048
  4. SPIRONOLACTONE [Concomitant]
     Dosage: 25 MG, QD
     Route: 048
  5. VERAPAMIL [Concomitant]
     Dosage: 120 MG, QD
     Route: 048
  6. BACTRIM [Concomitant]
     Indication: URINARY TRACT INFECTION
     Dosage: 1 DF, UNKNOWN
     Route: 048
     Dates: start: 20120427, end: 20120429

REACTIONS (9)
  - Delirium [Recovered/Resolved]
  - Confusional state [Recovered/Resolved]
  - Condition aggravated [Recovered/Resolved]
  - Hallucination, visual [Recovered/Resolved]
  - Logorrhoea [Unknown]
  - Oedema [Unknown]
  - Dehydration [Unknown]
  - Urinary tract infection [Unknown]
  - Off label use [Recovered/Resolved]
